FAERS Safety Report 9646957 (Version 1)
Quarter: 2013Q4

REPORT INFORMATION
  Report Type: Spontaneous
  Country: US (occurrence: US)
  Receive Date: 20131027
  Receipt Date: 20131027
  Transmission Date: 20140711
  Serious: No
  Sender: FDA-Public Use
  Company Number: US-PURDUE-USA-2013-0102322

PATIENT
  Sex: Male

DRUGS (3)
  1. OXYCONTIN (NDA 22-272) [Suspect]
     Indication: PAIN
     Dosage: 20 MG, UNK
     Route: 048
  2. CYMBALTA [Concomitant]
     Indication: PAIN
  3. PERCOCET                           /00867901/ [Concomitant]
     Indication: PAIN

REACTIONS (1)
  - Drug effect decreased [Unknown]
